FAERS Safety Report 5233582-0 (Version None)
Quarter: 2007Q1

REPORT INFORMATION
  Report Type: 
  Country: None (occurrence: None)
  Receive Date: 20070208
  Receipt Date: 20070131
  Transmission Date: 20070707
  Serious: Yes (Other)
  Sender: FDA-Public Use
  Company Number: US-AMGEN-US209304

PATIENT
  Sex: Female

DRUGS (2)
  1. KINERET [Suspect]
     Indication: RHEUMATOID ARTHRITIS
     Route: 065
  2. PREDNISONE [Concomitant]
     Route: 065

REACTIONS (3)
  - APPLICATION SITE EXFOLIATION [None]
  - INJECTION SITE ERYTHEMA [None]
  - THROMBOSIS [None]
